FAERS Safety Report 15977492 (Version 2)
Quarter: 2019Q1

REPORT INFORMATION
  Report Type: Report from Study
  Country: DE (occurrence: DE)
  Receive Date: 20190218
  Receipt Date: 20190321
  Transmission Date: 20190418
  Serious: No
  Sender: FDA-Public Use
  Company Number: PHHY2019DE037780

PATIENT
  Sex: Female
  Weight: 75 kg

DRUGS (23)
  1. COSENTYX [Suspect]
     Active Substance: SECUKINUMAB
     Dosage: 150 MG, PER APPLICATION (PRE-FILLED PEN)
     Route: 065
     Dates: start: 20171005
  2. COSENTYX [Suspect]
     Active Substance: SECUKINUMAB
     Dosage: 300 MG, PER APPLICATION (PRE-FILLED PEN)
     Route: 065
     Dates: start: 20180319
  3. BELOC ZOK [Concomitant]
     Active Substance: METOPROLOL SUCCINATE
     Indication: HYPERTENSION
     Dosage: 45 MG, QD
     Route: 048
  4. COSENTYX [Suspect]
     Active Substance: SECUKINUMAB
     Dosage: 150 MG, PER APPLICATION (PRE-FILLED PEN)
     Route: 065
     Dates: start: 20170928
  5. COSENTYX [Suspect]
     Active Substance: SECUKINUMAB
     Dosage: 150 MG, PER APPLICATION (PRE-FILLED PEN)
     Route: 065
     Dates: start: 20171012
  6. COSENTYX [Suspect]
     Active Substance: SECUKINUMAB
     Dosage: 150 MG, PER APPLICATION (PRE-FILLED PEN)
     Route: 065
     Dates: start: 20171119
  7. COSENTYX [Suspect]
     Active Substance: SECUKINUMAB
     Dosage: 300 MG, PER APPLICATION (PRE-FILLED PEN)
     Route: 065
     Dates: start: 20180519
  8. COSENTYX [Suspect]
     Active Substance: SECUKINUMAB
     Dosage: 300 MG, PER APPLICATION (PRE-FILLED PEN)
     Route: 065
     Dates: start: 20180819
  9. DULOXETINE. [Concomitant]
     Active Substance: DULOXETINE
     Indication: DEPRESSED MOOD
     Dosage: 30 MG, QD
     Route: 048
     Dates: start: 2018, end: 20180626
  10. COSENTYX [Suspect]
     Active Substance: SECUKINUMAB
     Indication: PSORIATIC ARTHROPATHY
     Dosage: 150 MG, PER APPLICATION (PRE-FILLED PEN)
     Route: 065
     Dates: start: 20170921
  11. COSENTYX [Suspect]
     Active Substance: SECUKINUMAB
     Dosage: 150 MG, PER APPLICATION (PRE-FILLED PEN)
     Route: 065
     Dates: start: 20171019
  12. COSENTYX [Suspect]
     Active Substance: SECUKINUMAB
     Dosage: 300 MG, PER APPLICATION (PRE-FILLED PEN)
     Route: 065
     Dates: start: 20180919
  13. MTX [Concomitant]
     Active Substance: METHOTREXATE SODIUM
     Dosage: 15 MG, QW
     Route: 048
     Dates: start: 201803
  14. GABAPENTIN. [Concomitant]
     Active Substance: GABAPENTIN
     Indication: PAIN
     Dosage: 300 MG, UNK
     Route: 048
     Dates: end: 201801
  15. COSENTYX [Suspect]
     Active Substance: SECUKINUMAB
     Dosage: 150 MG, PER APPLICATION (PRE-FILLED PEN)
     Route: 065
     Dates: start: 20171219
  16. COSENTYX [Suspect]
     Active Substance: SECUKINUMAB
     Dosage: 300 MG, PER APPLICATION (PRE-FILLED PEN)
     Route: 065
     Dates: start: 20180219
  17. COSENTYX [Suspect]
     Active Substance: SECUKINUMAB
     Dosage: 300 MG, PER APPLICATION (PRE-FILLED PEN)
     Route: 065
     Dates: start: 20180619
  18. MTX [Concomitant]
     Active Substance: METHOTREXATE SODIUM
     Indication: PSORIATIC ARTHROPATHY
     Dosage: 10 MG, QW
     Route: 048
     Dates: start: 201704, end: 201803
  19. CITALOPRAM [Concomitant]
     Active Substance: CITALOPRAM HYDROBROMIDE
     Indication: DEPRESSED MOOD
     Dosage: 20 MG, QD
     Route: 048
     Dates: end: 2018
  20. DEKRISTOL [Concomitant]
     Active Substance: CHOLECALCIFEROL
     Indication: VITAMIN D DEFICIENCY
     Dosage: 20000 IU, QW
     Route: 048
  21. COSENTYX [Suspect]
     Active Substance: SECUKINUMAB
     Dosage: 300 MG, PER APPLICATION (PRE-FILLED PEN)
     Route: 065
     Dates: start: 20180119
  22. COSENTYX [Suspect]
     Active Substance: SECUKINUMAB
     Dosage: 300 MG, PER APPLICATION (PRE-FILLED PEN)
     Route: 065
     Dates: start: 20180419
  23. COSENTYX [Suspect]
     Active Substance: SECUKINUMAB
     Dosage: 300 MG, PER APPLICATION (PRE-FILLED PEN)
     Route: 065
     Dates: start: 20180719

REACTIONS (1)
  - Small fibre neuropathy [Not Recovered/Not Resolved]

NARRATIVE: CASE EVENT DATE: 201806
